FAERS Safety Report 8386798-9 (Version None)
Quarter: 2012Q2

REPORT INFORMATION
  Report Type: 
  Country: None (occurrence: None)
  Receive Date: 20120523
  Receipt Date: 20120510
  Transmission Date: 20120825
  Serious: Yes (Life-Threatening, Hospitalization, Other)
  Sender: FDA-Public Use
  Company Number: AUR-APL-201000074

PATIENT
  Age: 73 Year
  Sex: Female
  Weight: 150 kg

DRUGS (12)
  1. OXYBUTYNIN [Concomitant]
  2. HUMALOG MIX 25 (HUMALOG MIX) [Concomitant]
  3. GABAPENTIN [Concomitant]
  4. HUMALOG [Concomitant]
  5. WARFARIN SODIUM [Concomitant]
  6. CO-FLUAMPICIL (MAGNAPEN) [Concomitant]
  7. ERYTHROMYCIN [Concomitant]
  8. LOPERAMIDE [Concomitant]
  9. OMEPRAZOLE [Concomitant]
  10. METFFORMIN HYDROCHLORIDE [Suspect]
     Indication: PRODUCT USED FOR UNKNOWN INDICATION
  11. MELOXICAM [Suspect]
     Indication: PRODUCT USED FOR UNKNOWN INDICATION
  12. CEFACLOR [Concomitant]

REACTIONS (1)
  - HYPERKALAEMIA [None]
